FAERS Safety Report 23044912 (Version 1)
Quarter: 2023Q4

REPORT INFORMATION
  Report Type: Spontaneous
  Country: US (occurrence: None)
  Receive Date: 20231009
  Receipt Date: 20231009
  Transmission Date: 20240110
  Serious: Yes (Hospitalization)
  Sender: FDA-Public Use
  Company Number: US-ROCHE-3433086

PATIENT

DRUGS (4)
  1. ALECTINIB [Suspect]
     Active Substance: ALECTINIB
     Indication: Non-small cell lung cancer stage IV
     Route: 065
  2. LORLATINIB [Suspect]
     Active Substance: LORLATINIB
     Indication: Non-small cell lung cancer stage IV
     Route: 065
     Dates: start: 20230824, end: 20230901
  3. GABAPENTIN [Concomitant]
     Active Substance: GABAPENTIN
  4. ZOLOFT [Concomitant]
     Active Substance: SERTRALINE HYDROCHLORIDE

REACTIONS (1)
  - Non-small cell lung cancer [Unknown]

NARRATIVE: CASE EVENT DATE: 20230901
